FAERS Safety Report 6249518-X (Version None)
Quarter: 2009Q2

REPORT INFORMATION
  Report Type: 
  Country: None (occurrence: None)
  Receive Date: 20090629
  Receipt Date: 20090619
  Transmission Date: 20091009
  Serious: Yes (Other)
  Sender: FDA-Public Use
  Company Number: B0580737A

PATIENT
  Sex: Female

DRUGS (6)
  1. LANOXIN [Suspect]
     Indication: DRUG USE FOR UNKNOWN INDICATION
     Dosage: .12MG PER DAY
     Route: 048
     Dates: start: 20080524, end: 20090524
  2. TRIATEC [Suspect]
     Dosage: 5MG PER DAY
     Route: 048
     Dates: start: 20080524, end: 20090524
  3. ISOPTIN [Suspect]
     Indication: DRUG USE FOR UNKNOWN INDICATION
     Dosage: 120MG PER DAY
     Route: 048
     Dates: start: 20080524, end: 20090524
  4. LASIX [Suspect]
     Route: 065
     Dates: start: 20080524, end: 20090524
  5. LANSOX [Concomitant]
     Route: 065
  6. COUMADIN [Concomitant]
     Dosage: 5MG PER DAY
     Route: 048

REACTIONS (3)
  - DEHYDRATION [None]
  - HYPOTENSION [None]
  - SYNCOPE [None]
